FAERS Safety Report 9578327 (Version 2)
Quarter: 2013Q4

REPORT INFORMATION
  Report Type: Spontaneous
  Country: US (occurrence: US)
  Receive Date: 20131001
  Receipt Date: 20131001
  Transmission Date: 20140711
  Serious: No
  Sender: FDA-Public Use
  Company Number: US-AMGEN-USASP2013011070

PATIENT
  Age: 60 Year
  Sex: Female

DRUGS (1)
  1. ENBREL [Suspect]
     Indication: RHEUMATOID ARTHRITIS
     Dosage: 50 MG, QWK
     Route: 058
     Dates: start: 20130128

REACTIONS (14)
  - Pain [Not Recovered/Not Resolved]
  - Headache [Not Recovered/Not Resolved]
  - Sinus headache [Unknown]
  - Nausea [Unknown]
  - Vomiting [Unknown]
  - Visual impairment [Unknown]
  - Dizziness [Unknown]
  - Fatigue [Unknown]
  - Rash erythematous [Unknown]
  - Rash papular [Unknown]
  - Pain in extremity [Unknown]
  - Local swelling [Unknown]
  - Weight increased [Unknown]
  - Laryngitis [Unknown]
